FAERS Safety Report 24596071 (Version 1)
Quarter: 2024Q4

REPORT INFORMATION
  Report Type: Spontaneous
  Country: US (occurrence: US)
  Receive Date: 20241109
  Receipt Date: 20241109
  Transmission Date: 20250114
  Serious: Yes (Hospitalization, Other)
  Sender: ALEXION PHARMACEUTICALS
  Company Number: US-AstraZeneca-CH-00741439A

PATIENT

DRUGS (4)
  1. BRILINTA [Suspect]
     Active Substance: TICAGRELOR
  2. BRILINTA [Suspect]
     Active Substance: TICAGRELOR
  3. BRILINTA [Suspect]
     Active Substance: TICAGRELOR
  4. BRILINTA [Suspect]
     Active Substance: TICAGRELOR

REACTIONS (3)
  - Product dose omission issue [Unknown]
  - Stress [Unknown]
  - Myocardial infarction [Unknown]
